FAERS Safety Report 7445998-2 (Version None)
Quarter: 2011Q2

REPORT INFORMATION
  Report Type: 
  Country: None (occurrence: None)
  Receive Date: 20110429
  Receipt Date: 20110419
  Transmission Date: 20111010
  Serious: Yes (Death, Life-Threatening, Hospitalization)
  Sender: FDA-Public Use
  Company Number: NL-GENZYME-CLOF-1001395

PATIENT
  Sex: Male
  Weight: 95 kg

DRUGS (3)
  1. IDARUBICIN [Suspect]
     Indication: ACUTE LEUKAEMIA
     Dosage: 20 MG, QOD
     Route: 042
     Dates: start: 20101113, end: 20101117
  2. EVOLTRA [Suspect]
     Indication: ACUTE LEUKAEMIA
     Dosage: 20 MG, QOD
     Route: 042
     Dates: start: 20101114, end: 20101122
  3. CYTOSINE ARABINOSIDE [Suspect]
     Indication: ACUTE LEUKAEMIA
     Dosage: 200 MG, QD
     Route: 042
     Dates: start: 20101113, end: 20101122

REACTIONS (2)
  - SEPSIS [None]
  - PANCYTOPENIA [None]
